APPROVED DRUG PRODUCT: OXYTOCIN
Active Ingredient: OXYTOCIN
Strength: 10USP UNITS/ML (10USP UNITS/ML)
Dosage Form/Route: INJECTABLE;INJECTION
Application: A091676 | Product #001 | TE Code: AP
Applicant: SAGENT PHARMACEUTICALS INC
Approved: Jul 13, 2018 | RLD: No | RS: No | Type: RX